FAERS Safety Report 8211354-2 (Version None)
Quarter: 2012Q1

REPORT INFORMATION
  Report Type: 
  Country: None (occurrence: None)
  Receive Date: 20120315
  Receipt Date: 20120306
  Transmission Date: 20120608
  Serious: Yes (Hospitalization, Other)
  Sender: FDA-Public Use
  Company Number: US-SANOFI-AVENTIS-2012SA010676

PATIENT
  Age: 83 Year
  Sex: Female
  Weight: 51 kg

DRUGS (8)
  1. MULTAQ [Suspect]
     Route: 048
     Dates: start: 20101230, end: 20111215
  2. MULTAQ [Suspect]
     Indication: ATRIAL FIBRILLATION
     Route: 048
     Dates: start: 20101230, end: 20111215
  3. LIPITOR [Concomitant]
  4. ACCUPRIL [Concomitant]
     Indication: BLOOD PRESSURE
  5. CARVEDILOL [Concomitant]
     Dates: start: 20100101
  6. GLUCOTROL [Concomitant]
  7. WARFARIN SODIUM [Concomitant]
     Indication: ANTICOAGULANT THERAPY
     Dosage: 7.5MG 6 DAYS A WEEK AND 10MG 1 DAY A WEEK
     Dates: start: 20100101
  8. METFORMIN HCL [Concomitant]

REACTIONS (5)
  - FLUID RETENTION [None]
  - GALLBLADDER DISORDER [None]
  - HEART RATE IRREGULAR [None]
  - DRUG INEFFECTIVE [None]
  - DYSPNOEA [None]
